FAERS Safety Report 5601599-X (Version None)
Quarter: 2008Q1

REPORT INFORMATION
  Report Type: 
  Country: None (occurrence: None)
  Receive Date: 20080124
  Receipt Date: 20080111
  Transmission Date: 20080703
  Serious: Yes (Death, Hospitalization)
  Sender: FDA-Public Use
  Company Number: US-SANOFI-SYNTHELABO-A03200800107

PATIENT
  Age: 55 Year
  Sex: Female

DRUGS (7)
  1. PLAQUENIL [Suspect]
     Indication: DRUG USE FOR UNKNOWN INDICATION
     Route: 048
  2. ASPIRIN [Concomitant]
     Indication: CARDIOVASCULAR DISORDER
     Route: 048
  3. COREG [Concomitant]
     Indication: CARDIOVASCULAR DISORDER
     Route: 048
  4. HYDRALAZINE [Concomitant]
     Indication: CARDIOVASCULAR DISORDER
     Route: 048
  5. ISORDIL [Concomitant]
     Indication: CARDIOVASCULAR DISORDER
     Route: 048
  6. CYTOXAN [Concomitant]
     Indication: SYSTEMIC LUPUS ERYTHEMATOSUS
     Dosage: UNK
     Route: 048
  7. PREDNISONE TAB [Concomitant]
     Route: 048

REACTIONS (3)
  - CARDIAC FAILURE CONGESTIVE [None]
  - CARDIOMYOPATHY [None]
  - RENAL FAILURE ACUTE [None]
